FAERS Safety Report 18777066 (Version 1)
Quarter: 2021Q1

REPORT INFORMATION
  Report Type: Spontaneous
  Country: FR (occurrence: FR)
  Receive Date: 20210123
  Receipt Date: 20210123
  Transmission Date: 20210419
  Serious: Yes (Hospitalization)
  Sender: FDA-Public Use
  Company Number: FR-ACCORD-215093

PATIENT
  Age: 88 Year
  Sex: Female
  Weight: 46.5 kg

DRUGS (17)
  1. LOVENOX [Concomitant]
     Active Substance: ENOXAPARIN SODIUM
     Route: 058
  2. SETOFILM [Concomitant]
     Active Substance: ONDANSETRON
     Dosage: STRENGTH: 8 MG
     Route: 048
     Dates: start: 20201203, end: 20201207
  3. MABTHERA [Concomitant]
     Active Substance: RITUXIMAB
     Dosage: STRENGTH: 500 MG, D1 FROM C1
     Route: 041
     Dates: start: 20201203, end: 20201203
  4. LARGACTIL [Concomitant]
     Active Substance: CHLORPROMAZINE
     Route: 048
  5. LEVOTHYROX [Concomitant]
     Active Substance: LEVOTHYROXINE
     Dosage: 75 MCG ODD DAYS, 88 MCG EVEN DAYS
     Route: 048
  6. DIFFU K [Concomitant]
     Active Substance: POTASSIUM CHLORIDE
     Route: 048
  7. ALDACTAZINE [Concomitant]
     Active Substance: ALTHIAZIDE\SPIRONOLACTONE
     Route: 048
  8. PARACETAMOL [Concomitant]
     Active Substance: ACETAMINOPHEN
     Dosage: STRENGTH: 1000 MG,
     Route: 048
     Dates: start: 20201206, end: 20201208
  9. METHOTREXATE. [Suspect]
     Active Substance: METHOTREXATE
     Indication: CENTRAL NERVOUS SYSTEM LYMPHOMA
     Dosage: OVER TWO HOURS. D1 OF C1.
     Route: 042
     Dates: start: 20201203, end: 20201203
  10. GAVISCON [Concomitant]
     Active Substance: ALUMINUM HYDROXIDE\MAGNESIUM CARBONATE
     Route: 048
  11. ATENOLOL/ATENOLOL HYDROCHLORIDE [Concomitant]
     Active Substance: ATENOLOL HYDROCHLORIDE
     Route: 048
  12. METHYLPREDNISOLONE. [Concomitant]
     Active Substance: METHYLPREDNISOLONE
     Dosage: 240 MG ON 03/12 THEN 60 MG UNTIL 06/12/20
     Route: 042
     Dates: start: 20201203, end: 20201206
  13. PANTOPRAZOLE [Concomitant]
     Active Substance: PANTOPRAZOLE
     Route: 048
     Dates: start: 2013, end: 20201208
  14. PROCARBAZINE [Concomitant]
     Active Substance: PROCARBAZINE
     Dosage: FROM D1 TO D7 OF C1. 100 MG /M2
     Route: 048
     Dates: start: 20201203, end: 20201209
  15. EZETIMIBE. [Concomitant]
     Active Substance: EZETIMIBE
     Route: 048
     Dates: start: 2014, end: 20201208
  16. SOLUPRED [Concomitant]
     Dosage: STRENGTH: 20 MG
     Route: 048
     Dates: start: 20201205, end: 20201211
  17. AMPHOTERICIN B. [Concomitant]
     Active Substance: AMPHOTERICIN B
     Dosage: 10 PERCENT, 2X /D
     Route: 048

REACTIONS (2)
  - Hepatocellular injury [Recovered/Resolved]
  - Drug level increased [Recovering/Resolving]

NARRATIVE: CASE EVENT DATE: 20201205
